FAERS Safety Report 25443598 (Version 4)
Quarter: 2025Q3

REPORT INFORMATION
  Report Type: Report from Study
  Country: US (occurrence: US)
  Receive Date: 20250617
  Receipt Date: 20250815
  Transmission Date: 20251021
  Serious: No
  Sender: SUNOVION
  Company Number: US-SMPA-2025SPA006450AA

PATIENT
  Age: 70 Year
  Sex: Male

DRUGS (22)
  1. ORGOVYX [Suspect]
     Active Substance: RELUGOLIX
     Indication: Prostate cancer
     Dosage: 360 MG, SINGLE
     Route: 048
     Dates: start: 20250411, end: 20250411
  2. ORGOVYX [Suspect]
     Active Substance: RELUGOLIX
     Dosage: 120 MG, QD
     Route: 048
     Dates: start: 20250412
  3. ASPIRIN [Concomitant]
     Active Substance: ASPIRIN
  4. VITAMIN B COMPLEX [Concomitant]
     Active Substance: CYANOCOBALAMIN\DEXPANTHENOL\NIACINAMIDE\PYRIDOXINE HYDROCHLORIDE\RIBOFLAVIN 5^-PHOSPHATE SODIUM\THIA
  5. CLOBETASOL PROPIONATE [Concomitant]
     Active Substance: CLOBETASOL PROPIONATE
  6. COENZYME Q10 [Concomitant]
     Active Substance: DIETARY SUPPLEMENT\UBIDECARENONE
     Route: 048
  7. FISH OIL [Concomitant]
     Active Substance: FISH OIL
     Route: 048
  8. GARLIC [Concomitant]
     Active Substance: GARLIC
     Route: 048
  9. MAGNESIUM [Concomitant]
     Active Substance: MAGNESIUM
     Route: 048
  10. VITAMIN C [Concomitant]
     Active Substance: ASCORBIC ACID
     Route: 048
  11. VITAMINS [Concomitant]
     Active Substance: VITAMINS
  12. MINERALS [Concomitant]
     Active Substance: MINERALS
  13. PRASTERONE [Concomitant]
     Active Substance: PRASTERONE
     Route: 048
  14. EZETIMIBE [Concomitant]
     Active Substance: EZETIMIBE
  15. TEA [Concomitant]
     Active Substance: TEA LEAF
     Route: 048
  16. OMEPRAZOLE [Concomitant]
     Active Substance: OMEPRAZOLE
  17. Prostate support [Concomitant]
     Route: 048
  18. DOXYLAMINE SUCCINATE [Concomitant]
     Active Substance: DOXYLAMINE SUCCINATE
     Indication: Insomnia
     Route: 048
  19. TAMSULOSIN [Concomitant]
     Active Substance: TAMSULOSIN
  20. XTANDI [Concomitant]
     Active Substance: ENZALUTAMIDE
  21. ZOLPIDEM [Concomitant]
     Active Substance: ZOLPIDEM TARTRATE
  22. CRANBERRY JUICE [Concomitant]
     Active Substance: CRANBERRY JUICE
     Route: 048

REACTIONS (10)
  - Muscle spasms [Unknown]
  - Flatulence [Not Recovered/Not Resolved]
  - Lethargy [Unknown]
  - Frequent bowel movements [Unknown]
  - Pollakiuria [Unknown]
  - Dizziness [Unknown]
  - Hot flush [Unknown]
  - Insomnia [Not Recovered/Not Resolved]
  - Diarrhoea [Not Recovered/Not Resolved]
  - Product dose omission issue [Recovered/Resolved]
